FAERS Safety Report 11897416 (Version 1)
Quarter: 2016Q1

REPORT INFORMATION
  Report Type: Spontaneous
  Country: US (occurrence: US)
  Receive Date: 20160108
  Receipt Date: 20160108
  Transmission Date: 20160526
  Serious: Yes (Death)
  Sender: FDA-Public Use
  Company Number: US-THE MEDICINES COMPANY-US-MDCO-15-00531

PATIENT
  Age: 88 Year
  Sex: Male

DRUGS (1)
  1. KENGREAL [Suspect]
     Active Substance: CANGRELOR
     Indication: PERCUTANEOUS CORONARY INTERVENTION
     Dosage: NOT REPORTED
     Route: 041

REACTIONS (2)
  - Cardio-respiratory arrest [Fatal]
  - Gastric haemorrhage [Fatal]

NARRATIVE: CASE EVENT DATE: 20151217
